FAERS Safety Report 21738640 (Version 1)
Quarter: 2022Q4

REPORT INFORMATION
  Report Type: Spontaneous
  Country: US (occurrence: US)
  Receive Date: 20221216
  Receipt Date: 20221216
  Transmission Date: 20230112
  Serious: No
  Sender: FDA-Public Use
  Company Number: US-UROGEN PHARMA LTD.-2022-UGN-000124

PATIENT

DRUGS (8)
  1. JELMYTO [Suspect]
     Active Substance: MITOMYCIN
     Indication: Transitional cell cancer of the renal pelvis and ureter
     Dosage: 1 (INSTILLATION)
     Dates: start: 2022, end: 2022
  2. JELMYTO [Suspect]
     Active Substance: MITOMYCIN
     Dosage: 1 (INSTILLATION)
     Dates: start: 2022, end: 2022
  3. JELMYTO [Suspect]
     Active Substance: MITOMYCIN
     Dosage: 1 (INSTILLATION)
     Dates: start: 2022, end: 2022
  4. JELMYTO [Suspect]
     Active Substance: MITOMYCIN
     Dosage: 1 (INSTILLATION)
     Dates: start: 2022, end: 2022
  5. JELMYTO [Suspect]
     Active Substance: MITOMYCIN
     Dosage: 1 (INSTILLATION)
     Dates: start: 2022, end: 2022
  6. JELMYTO [Suspect]
     Active Substance: MITOMYCIN
     Dosage: 1 (INSTILLATION)
     Dates: start: 2022, end: 2022
  7. JELMYTO [Suspect]
     Active Substance: MITOMYCIN
     Dosage: 1 (INSTILLATION)
  8. JELMYTO [Suspect]
     Active Substance: MITOMYCIN
     Dosage: 1 (INSTILLATION)

REACTIONS (1)
  - Malaise [Unknown]

NARRATIVE: CASE EVENT DATE: 20220101
